FAERS Safety Report 6712499-6 (Version None)
Quarter: 2010Q2

REPORT INFORMATION
  Report Type: 
  Country: None (occurrence: None)
  Receive Date: 20100505
  Receipt Date: 20100505
  Transmission Date: 20101027
  Serious: Yes (Disabling)
  Sender: FDA-Public Use
  Company Number: None

PATIENT
  Sex: Female
  Weight: 61.2356 kg

DRUGS (4)
  1. RISPERDAL [Suspect]
     Indication: MENTAL DISORDER
     Dosage: RISPERADOL TWICE A DAY ORAL TAB
     Route: 048
     Dates: start: 20040101
  2. LEXAPRO [Suspect]
     Indication: MENTAL DISORDER
     Dosage: LEXAPRO ONCE A DAY ORAL TAB
     Route: 048
     Dates: start: 20100101
  3. BENZOPROPINE [Concomitant]
  4. COGENTIN [Concomitant]

REACTIONS (12)
  - ASTHENIA [None]
  - BALANCE DISORDER [None]
  - BLOOD CHOLESTEROL ABNORMAL [None]
  - BREAST MASS [None]
  - DIABETES MELLITUS [None]
  - HEART RATE IRREGULAR [None]
  - HYPERTENSION [None]
  - MUSCULAR WEAKNESS [None]
  - MUSCULOSKELETAL STIFFNESS [None]
  - OEDEMA PERIPHERAL [None]
  - PERIORBITAL OEDEMA [None]
  - WEIGHT INCREASED [None]
